FAERS Safety Report 8296660-8 (Version None)
Quarter: 2012Q2

REPORT INFORMATION
  Report Type: 
  Country: None (occurrence: None)
  Receive Date: 20120418
  Receipt Date: 20120418
  Transmission Date: 20120825
  Serious: Yes (Other)
  Sender: FDA-Public Use
  Company Number: None

PATIENT
  Sex: Female

DRUGS (1)
  1. XELODA [Suspect]
     Indication: INTESTINAL OBSTRUCTION
     Dosage: 2 IN MORNING AND 2 BEFORE BED
     Route: 048
     Dates: start: 20120312, end: 20120401

REACTIONS (4)
  - VOMITING [None]
  - RENAL IMPAIRMENT [None]
  - NAUSEA [None]
  - DECREASED APPETITE [None]
